FAERS Safety Report 10954842 (Version 1)
Quarter: 2015Q1

REPORT INFORMATION
  Report Type: Spontaneous
  Country: CL (occurrence: CL)
  Receive Date: 20150325
  Receipt Date: 20150325
  Transmission Date: 20150721
  Serious: Yes (Other)
  Sender: FDA-Public Use
  Company Number: CL-009507513-1503CHL009551

PATIENT
  Sex: Female

DRUGS (3)
  1. EUTIROX [Interacting]
     Active Substance: LEVOTHYROXINE SODIUM
  2. NUVARING [Interacting]
     Active Substance: ETHINYL ESTRADIOL\ETONOGESTREL
     Dosage: DELIVERS 0.120MG/0.025MG
     Route: 067
     Dates: end: 2013
  3. NUVARING [Suspect]
     Active Substance: ETHINYL ESTRADIOL\ETONOGESTREL
     Indication: CONTRACEPTION
     Dosage: DELIVERS 0.120MG/0.025MG
     Route: 067
     Dates: start: 201411

REACTIONS (4)
  - Hunger [Unknown]
  - Drug interaction [Unknown]
  - Thyroid cancer [Unknown]
  - Hypothyroidism [Unknown]

NARRATIVE: CASE EVENT DATE: 2013
